FAERS Safety Report 4680456-X (Version None)
Quarter: 2005Q2

REPORT INFORMATION
  Report Type: 
  Country: None (occurrence: None)
  Receive Date: 20050602
  Receipt Date: 20050527
  Transmission Date: 20051028
  Serious: Yes (Other)
  Sender: FDA-Public Use
  Company Number: US-MERCK-0505USA03359

PATIENT
  Age: 60 Year
  Sex: Male

DRUGS (1)
  1. ZOCOR [Suspect]
     Indication: BLOOD CHOLESTEROL INCREASED
     Route: 048

REACTIONS (4)
  - ALDOLASE INCREASED [None]
  - BLOOD CREATINE PHOSPHOKINASE INCREASED [None]
  - MUSCULAR WEAKNESS [None]
  - MYALGIA [None]
